FAERS Safety Report 4376400-5 (Version None)
Quarter: 2004Q2

REPORT INFORMATION
  Report Type: 
  Country: None (occurrence: None)
  Receive Date: 20040608
  Receipt Date: 20040526
  Transmission Date: 20050107
  Serious: Yes (Disabling, Other)
  Sender: FDA-Public Use
  Company Number: USA-2004-0015392

PATIENT
  Sex: Male

DRUGS (1)
  1. OXYCONTIN [Suspect]
     Indication: PAIN
     Dosage: SEE TEXT, ORAL
     Route: 048

REACTIONS (4)
  - ANXIETY [None]
  - DRUG DEPENDENCE [None]
  - NERVOUS SYSTEM DISORDER [None]
  - PAIN [None]
